FAERS Safety Report 4343097-X (Version None)
Quarter: 2004Q2

REPORT INFORMATION
  Report Type: 
  Country: None (occurrence: None)
  Receive Date: 20040421
  Receipt Date: 20010213
  Transmission Date: 20050107
  Serious: Yes (Hospitalization)
  Sender: FDA-Public Use
  Company Number: US-GLAXOSMITHKLINE-A0139871A

PATIENT
  Age: 16 Month
  Sex: Female
  Weight: 13.6 kg

DRUGS (2)
  1. LAMICTAL [Suspect]
     Indication: EPILEPSY
     Dosage: 5MG THREE TIMES PER DAY
     Route: 048
     Dates: start: 20010119
  2. CARBAMAZEPINE [Suspect]

REACTIONS (16)
  - CONVULSION [None]
  - COUGH [None]
  - DRUG TOXICITY [None]
  - ENCEPHALOPATHY [None]
  - GAIT DISTURBANCE [None]
  - INFECTION [None]
  - LETHARGY [None]
  - MENTAL STATUS CHANGES [None]
  - OTITIS MEDIA [None]
  - PYREXIA [None]
  - RESPIRATORY DISTRESS [None]
  - STAPHYLOCOCCAL BACTERAEMIA [None]
  - STATUS EPILEPTICUS [None]
  - STRIDOR [None]
  - TACHYCARDIA [None]
  - VOMITING [None]
